FAERS Safety Report 8815370 (Version 4)
Quarter: 2013Q3

REPORT INFORMATION
  Report Type: Spontaneous
  Country: US (occurrence: US)
  Receive Date: 20120928
  Receipt Date: 20130821
  Transmission Date: 20140515
  Serious: Yes (Hospitalization, Other)
  Sender: FDA-Public Use
  Company Number: US-009507513-1209USA010312

PATIENT
  Sex: Female
  Weight: 107.94 kg

DRUGS (6)
  1. FOSAMAX [Suspect]
     Indication: BONE LOSS
     Dosage: UNK
     Route: 048
     Dates: start: 19980908
  2. FOSAMAX [Suspect]
     Indication: OSTEOPENIA
     Dosage: 70 MG, QW
     Route: 048
     Dates: start: 200501, end: 20111105
  3. ALENDRONATE SODIUM [Suspect]
     Dosage: 70 MG, QW
     Route: 048
  4. VITAMIN D (UNSPECIFIED) [Concomitant]
     Dosage: 1000 IU QD
     Dates: start: 1992
  5. VITAMIN B COMPLEX [Concomitant]
     Dosage: UNK, QD
     Dates: start: 1992
  6. PULMICORT [Concomitant]
     Indication: ASTHMA
     Dosage: 200 MICROGRAM, HS
     Route: 055

REACTIONS (44)
  - Intramedullary rod insertion [Unknown]
  - Intramedullary rod insertion [Unknown]
  - Intramedullary rod insertion [Unknown]
  - Knee arthroplasty [Unknown]
  - Cholecystectomy [Unknown]
  - Removal of internal fixation [Unknown]
  - Rotator cuff repair [Unknown]
  - Femur fracture [Unknown]
  - Femur fracture [Unknown]
  - Femur fracture [Recovered/Resolved]
  - Adverse event [Unknown]
  - Impaired healing [Unknown]
  - Pelvic fracture [Unknown]
  - Hypothyroidism [Unknown]
  - Osteoarthritis [Unknown]
  - Vertebral osteophyte [Unknown]
  - Fall [Unknown]
  - Osteoarthritis [Unknown]
  - Umbilical hernia repair [Unknown]
  - Eczema [Unknown]
  - Large intestine polyp [Unknown]
  - Infection [Recovered/Resolved]
  - Hypertension [Unknown]
  - Stomatitis [Unknown]
  - Body height decreased [Unknown]
  - Osteoarthritis [Unknown]
  - Spondylitis [Unknown]
  - Fall [Unknown]
  - Muscle strain [Unknown]
  - Transient ischaemic attack [Unknown]
  - Osteoarthritis [Unknown]
  - Balance disorder [Unknown]
  - Foot fracture [Unknown]
  - Medical device removal [Unknown]
  - Foot deformity [Unknown]
  - Fall [Unknown]
  - Knee operation [Unknown]
  - Osteoarthritis [Unknown]
  - Sleep apnoea syndrome [Unknown]
  - Mucosal dryness [Unknown]
  - Chest pain [Unknown]
  - Conjunctivitis [Unknown]
  - Joint swelling [Not Recovered/Not Resolved]
  - Dizziness [Unknown]
